FAERS Safety Report 23645875 (Version 1)
Quarter: 2024Q1

REPORT INFORMATION
  Report Type: Spontaneous
  Country: US (occurrence: US)
  Receive Date: 20240319
  Receipt Date: 20240319
  Transmission Date: 20240409
  Serious: No
  Sender: FDA-Public Use
  Company Number: US-TAKEDA-2024TUS024814

PATIENT
  Age: 15 Year
  Sex: Male

DRUGS (2)
  1. ELAPRASE [Suspect]
     Active Substance: IDURSULFASE
     Indication: Mucopolysaccharidosis II
     Dosage: 6 MILLIGRAM
     Route: 065
     Dates: start: 20200317
  2. ELAPRASE [Suspect]
     Active Substance: IDURSULFASE
     Dosage: 24 MILLIGRAM
     Route: 065

REACTIONS (1)
  - Pyrexia [Unknown]
